FAERS Safety Report 12693269 (Version 2)
Quarter: 2020Q3

REPORT INFORMATION
  Report Type: Report from Study
  Country: CA (occurrence: CA)
  Receive Date: 20160829
  Receipt Date: 20200916
  Transmission Date: 20201102
  Serious: Yes (Other)
  Sender: FDA-Public Use
  Company Number: CA-JNJFOC-20160817978

PATIENT
  Age: 7 Year
  Sex: Female
  Weight: 22 kg

DRUGS (2)
  1. REMICADE [Suspect]
     Active Substance: INFLIXIMAB
     Indication: CROHN^S DISEASE
     Dosage: (LOADING DOSE L3)?V1: RECEIVED ON 07?DEC?2016.
     Route: 042
     Dates: start: 20160727
  2. REMICADE [Suspect]
     Active Substance: INFLIXIMAB
     Dosage: REACTED ONLY ONE IN 2016 (AFTER 3TH TX).REACTION IN 2016.STOPPED X1YEAR.RESTARTED.NO FURTHER PROBLEM
     Route: 042
     Dates: start: 20190724

REACTIONS (8)
  - Product use issue [Unknown]
  - Oxygen saturation decreased [Recovered/Resolved]
  - Anaphylactic shock [Unknown]
  - Infusion related reaction [Recovered/Resolved]
  - Dyspnoea [Recovered/Resolved]
  - Product use issue [Unknown]
  - Urticaria [Recovered/Resolved]
  - Off label use [Unknown]

NARRATIVE: CASE EVENT DATE: 2016
